FAERS Safety Report 12869403 (Version 1)
Quarter: 2016Q4

REPORT INFORMATION
  Report Type: Report from Study
  Country: BR (occurrence: BR)
  Receive Date: 20161021
  Receipt Date: 20161021
  Transmission Date: 20170207
  Serious: Yes (Disabling)
  Sender: FDA-Public Use
  Company Number: PHHY2016BR142937

PATIENT
  Age: 64 Year
  Sex: Female
  Weight: 67.5 kg

DRUGS (1)
  1. ACLASTA [Suspect]
     Active Substance: ZOLEDRONIC ACID
     Indication: OSTEOPOROSIS
     Dosage: 5 MG, Q12MO
     Route: 042
     Dates: start: 201308

REACTIONS (2)
  - Malaise [Unknown]
  - Spinal pain [Unknown]

NARRATIVE: CASE EVENT DATE: 20160905
